FAERS Safety Report 4622508-6 (Version None)
Quarter: 2005Q1

REPORT INFORMATION
  Report Type: 
  Country: None (occurrence: None)
  Receive Date: 20050330
  Receipt Date: 20050322
  Transmission Date: 20050727
  Serious: Yes (Death, Hospitalization)
  Sender: FDA-Public Use
  Company Number: FR-ROCHE-399323

PATIENT
  Age: 63 Year
  Sex: Female

DRUGS (2)
  1. CAPECITABINE [Suspect]
     Indication: BREAST CANCER
     Dosage: GIVEN FOR FOURTEEN DAYS WITH ONE WEEK REST AS PART OF A 21 DAY CYCLE.
     Route: 048
     Dates: start: 20050210, end: 20050217
  2. IXABEPILONE [Suspect]
     Indication: BREAST CANCER
     Dosage: GIVEN ON DAY 1 EVERY 21 DAYS.
     Route: 042
     Dates: start: 20050210, end: 20050210

REACTIONS (8)
  - BLOOD CULTURE POSITIVE [None]
  - DEHYDRATION [None]
  - DIARRHOEA [None]
  - ESCHERICHIA INFECTION [None]
  - NEUTROPENIA [None]
  - PNEUMOCOCCAL INFECTION [None]
  - SEPTIC SHOCK [None]
  - VOMITING [None]
